FAERS Safety Report 9161571 (Version 2)
Quarter: 2013Q2

REPORT INFORMATION
  Report Type: Report from Study
  Country: NL (occurrence: NL)
  Receive Date: 20130313
  Receipt Date: 20130419
  Transmission Date: 20140414
  Serious: Yes (Hospitalization)
  Sender: FDA-Public Use
  Company Number: NL-BAXTER-2013BAX008586

PATIENT
  Age: 80 Year
  Sex: Female
  Weight: 105.7 kg

DRUGS (23)
  1. CYTOXAN? (CYCLOPHOSPHAMIDE FOR INJECTION, USP) [Suspect]
     Indication: DIFFUSE LARGE B-CELL LYMPHOMA
     Route: 065
     Dates: start: 20130130
  2. RITUXIMAB [Suspect]
     Indication: DIFFUSE LARGE B-CELL LYMPHOMA
     Route: 042
     Dates: start: 20130130
  3. RITUXIMAB [Suspect]
     Route: 058
     Dates: start: 20130213
  4. VINCRISTINE [Suspect]
     Indication: DIFFUSE LARGE B-CELL LYMPHOMA
     Route: 065
     Dates: start: 20130130
  5. VINCRISTINE [Suspect]
     Route: 065
     Dates: start: 20130213
  6. PREDNISONE [Suspect]
     Indication: DIFFUSE LARGE B-CELL LYMPHOMA
     Dosage: 5 (UNITS NOT REPORTED)
     Route: 065
     Dates: start: 20130130
  7. PREDNISONE [Suspect]
     Dosage: 5 (UNITS NOT REPORTED)
     Route: 065
     Dates: start: 20130213
  8. DOXORUBICIN [Suspect]
     Indication: DIFFUSE LARGE B-CELL LYMPHOMA
     Route: 065
     Dates: start: 20130130
  9. DOXORUBICIN [Suspect]
     Route: 065
     Dates: start: 20130213
  10. METOPROLOL [Concomitant]
     Indication: PRODUCT USED FOR UNKNOWN INDICATION
     Route: 065
     Dates: start: 20121213
  11. METOCLOPRAMIDE [Concomitant]
     Indication: PROPHYLAXIS
     Route: 048
     Dates: start: 20130131, end: 20130203
  12. METOCLOPRAMIDE [Concomitant]
     Route: 048
     Dates: start: 20130214, end: 20130217
  13. FILGRASTIM [Concomitant]
     Indication: PROPHYLAXIS
     Dosage: 48
     Route: 065
     Dates: start: 20130131, end: 20130210
  14. PARACETAMOL [Concomitant]
     Indication: PROPHYLAXIS
     Route: 048
     Dates: start: 20130130, end: 20130131
  15. PARACETAMOL [Concomitant]
     Route: 048
     Dates: start: 20130213, end: 20130214
  16. GRANISETRON HYDROCHLORIDE [Concomitant]
     Indication: PROPHYLAXIS
     Route: 048
     Dates: start: 20130130, end: 20130130
  17. GRANISETRON HYDROCHLORIDE [Concomitant]
     Route: 048
     Dates: start: 20130213, end: 20130213
  18. CLEMASTINE [Concomitant]
     Indication: PROPHYLAXIS
     Route: 042
     Dates: start: 20130130, end: 20130131
  19. CLEMASTINE [Concomitant]
     Route: 042
     Dates: start: 20130213, end: 20130214
  20. FUROSEMIDE [Concomitant]
     Indication: PRODUCT USED FOR UNKNOWN INDICATION
     Route: 065
     Dates: start: 20121213
  21. SIMVASTATINE [Concomitant]
     Indication: PRODUCT USED FOR UNKNOWN INDICATION
     Route: 065
     Dates: start: 20121204
  22. PERINDOPRIL [Concomitant]
     Indication: PRODUCT USED FOR UNKNOWN INDICATION
     Route: 065
     Dates: start: 20121204
  23. AMLODIPINE [Concomitant]
     Indication: PRODUCT USED FOR UNKNOWN INDICATION
     Route: 065
     Dates: start: 20130129

REACTIONS (3)
  - Pneumonia [Recovered/Resolved]
  - Dyspnoea [Unknown]
  - Atrial fibrillation [Recovered/Resolved]
